FAERS Safety Report 18333446 (Version 1)
Quarter: 2020Q4

REPORT INFORMATION
  Report Type: Report from Study
  Country: US (occurrence: US)
  Receive Date: 20201001
  Receipt Date: 20201001
  Transmission Date: 20210113
  Serious: Yes (Other)
  Sender: FDA-Public Use
  Company Number: US-EMD SERONO-9188131

PATIENT
  Age: 42 Year
  Sex: Female

DRUGS (2)
  1. REBIF [Suspect]
     Active Substance: INTERFERON BETA-1A
     Indication: PRODUCT USED FOR UNKNOWN INDICATION
     Route: 058
     Dates: start: 20111226, end: 20200110
  2. REBIF [Suspect]
     Active Substance: INTERFERON BETA-1A
     Route: 058
     Dates: start: 20200304

REACTIONS (8)
  - Hysterectomy [Unknown]
  - Stress [Unknown]
  - Muscle tightness [Unknown]
  - Mobility decreased [Unknown]
  - Fluid intake reduced [Unknown]
  - Headache [Unknown]
  - Nerve compression [Unknown]
  - Dehydration [Unknown]

NARRATIVE: CASE EVENT DATE: 201912
